FAERS Safety Report 6992417-6 (Version None)
Quarter: 2010Q3

REPORT INFORMATION
  Report Type: 
  Country: None (occurrence: None)
  Receive Date: 20100917
  Receipt Date: 20100907
  Transmission Date: 20110219
  Serious: Yes (Other)
  Sender: FDA-Public Use
  Company Number: PHHY2010JP36199

PATIENT
  Sex: Male
  Weight: 80 kg

DRUGS (13)
  1. ALISKIREN/AMOLODIPINE BESYLATE/HYDROCHLOROTHIAZIDE [Suspect]
     Indication: HYPERTENSION
     Dosage: 150 MG, QD
     Route: 048
     Dates: start: 20091218
  2. AMLODIPINE [Concomitant]
     Indication: HYPERTENSION
     Dosage: 5 MG
     Route: 048
     Dates: end: 20100125
  3. ATELEC [Concomitant]
     Indication: HYPERTENSION
     Dosage: 10 MG, UNK
     Route: 048
     Dates: start: 20100126
  4. ASPIRIN [Concomitant]
     Dosage: 100 MG, UNK
     Route: 048
     Dates: end: 20100104
  5. FOSRENOL [Concomitant]
     Dosage: 750 MG
     Route: 048
  6. FOSRENOL [Concomitant]
     Dosage: 1500 MG
     Route: 048
  7. CALCIUM CARBONATE [Concomitant]
     Dosage: 3000 MG, UNK
     Route: 048
  8. KALIMATE [Concomitant]
     Dosage: 15 G, UNK
     Route: 048
  9. EPOGIN [Concomitant]
     Route: 042
  10. FESIN [Concomitant]
     Indication: NEPHROGENIC ANAEMIA
     Dosage: 1 DF, UNK
     Route: 042
  11. LANSOPRAZOLE [Concomitant]
     Dosage: 15 MG, UNK
     Route: 048
     Dates: start: 20091221
  12. ZYLORIC [Concomitant]
     Dosage: 100 MG, UNK
     Route: 048
     Dates: start: 20100423
  13. OXAROL [Concomitant]
     Dosage: 15 MG, UNK
     Route: 042

REACTIONS (2)
  - BLOOD PRESSURE INCREASED [None]
  - BLOOD URIC ACID INCREASED [None]
